FAERS Safety Report 7816215-6 (Version None)
Quarter: 2011Q4

REPORT INFORMATION
  Report Type: 
  Country: None (occurrence: None)
  Receive Date: 20111015
  Receipt Date: 20111004
  Transmission Date: 20120403
  Serious: Yes (Other)
  Sender: FDA-Public Use
  Company Number: BE-ROCHE-1002199

PATIENT
  Sex: Male

DRUGS (4)
  1. LEUCOVORIN CALCIUM [Concomitant]
  2. FLUOROURACIL [Concomitant]
  3. AVASTIN [Suspect]
     Indication: COLORECTAL CANCER METASTATIC
  4. IRINOTECAN HCL [Concomitant]

REACTIONS (1)
  - PHLEBITIS DEEP [None]
